FAERS Safety Report 7725856-6 (Version None)
Quarter: 2011Q3

REPORT INFORMATION
  Report Type: 
  Country: None (occurrence: None)
  Receive Date: 20110902
  Receipt Date: 20110826
  Transmission Date: 20111222
  Serious: Yes (Other)
  Sender: FDA-Public Use
  Company Number: JP-GENZYME-FLUD-1001367

PATIENT

DRUGS (6)
  1. CYCLOSPORINE [Concomitant]
     Indication: PROPHYLAXIS AGAINST GRAFT VERSUS HOST DISEASE
  2. MELPHALAN [Suspect]
     Indication: BONE MARROW CONDITIONING REGIMEN
     Dosage: 160 MG/M2, QD ON DAYS -3 AND -2
     Route: 042
  3. FLUDARA [Suspect]
     Indication: HAEMATOLOGICAL MALIGNANCY
  4. METHOTREXATE [Concomitant]
     Indication: PROPHYLAXIS AGAINST GRAFT VERSUS HOST DISEASE
  5. FLUDARA [Suspect]
     Indication: BONE MARROW CONDITIONING REGIMEN
     Dosage: 25 MG/M2, QDX5 ON DAYS -6 TO -2
     Route: 042
  6. MELPHALAN [Suspect]
     Indication: HAEMATOLOGICAL MALIGNANCY

REACTIONS (2)
  - LUNG INFECTION [None]
  - VENOOCCLUSIVE DISEASE [None]
